FAERS Safety Report 19512059 (Version 1)
Quarter: 2021Q3

REPORT INFORMATION
  Report Type: Spontaneous
  Country: US (occurrence: US)
  Receive Date: 20210709
  Receipt Date: 20210709
  Transmission Date: 20211014
  Serious: No
  Sender: FDA-Public Use
  Company Number: None

PATIENT
  Age: 60 Year
  Sex: Female
  Weight: 65.3 kg

DRUGS (1)
  1. CASIRIVIMAB?IMDEVIMAB [Suspect]
     Active Substance: CASIRIVIMAB\IMDEVIMAB
     Indication: COVID-19
     Dosage: ?          QUANTITY:2 INJECTION(S);OTHER FREQUENCY:ONE TIME;?
     Dates: start: 20210708, end: 20210708

REACTIONS (3)
  - Product preparation error [None]
  - Dose calculation error [None]
  - Wrong dose [None]

NARRATIVE: CASE EVENT DATE: 20210708
